FAERS Safety Report 9688790 (Version 1)
Quarter: 2013Q4

REPORT INFORMATION
  Report Type: Spontaneous
  Country: US (occurrence: US)
  Receive Date: 20131114
  Receipt Date: 20131114
  Transmission Date: 20140711
  Serious: Yes (Disabling, Other)
  Sender: FDA-Public Use
  Company Number: US-ELI_LILLY_AND_COMPANY-US201311000712

PATIENT
  Sex: Female

DRUGS (2)
  1. HUMULIN 30% REGULAR, 70% NPH [Suspect]
     Indication: PRODUCT USED FOR UNKNOWN INDICATION
     Dosage: UNK
     Route: 065
     Dates: start: 1998, end: 2012
  2. HUMULIN 30% REGULAR, 70% NPH [Suspect]
     Dosage: UNK
     Route: 065
     Dates: start: 201310

REACTIONS (7)
  - Optic ischaemic neuropathy [Unknown]
  - Blindness unilateral [Not Recovered/Not Resolved]
  - Blood glucose abnormal [Unknown]
  - Blood cholesterol increased [Unknown]
  - Drug hypersensitivity [Unknown]
  - Blood glucose increased [Unknown]
  - Drug ineffective [Unknown]
